FAERS Safety Report 4994043-7 (Version None)
Quarter: 2006Q2

REPORT INFORMATION
  Report Type: 
  Country: None (occurrence: None)
  Receive Date: 20060505
  Receipt Date: 20060105
  Transmission Date: 20061013
  Serious: Yes (Other)
  Sender: FDA-Public Use
  Company Number: PHNR2006AU00448

PATIENT
  Sex: Male

DRUGS (5)
  1. AMIODARONE HCL [Concomitant]
  2. CLOPIDOGREL BISULFATE [Concomitant]
  3. LIPITOR [Concomitant]
  4. LANSOPRAZOLE [Concomitant]
  5. ZOMETA [Suspect]
     Indication: METASTASES TO BONE
     Dosage: 4 MG, EVERY FOUR WEEKS
     Dates: start: 20050101

REACTIONS (9)
  - ASTHENIA [None]
  - BACK PAIN [None]
  - BLOOD ALKALINE PHOSPHATASE INCREASED [None]
  - BLOOD CALCIUM DECREASED [None]
  - BLOOD POTASSIUM INCREASED [None]
  - FREE PROSTATE-SPECIFIC ANTIGEN DECREASED [None]
  - MYALGIA [None]
  - RED BLOOD CELL COUNT INCREASED [None]
  - SEXUAL DYSFUNCTION [None]
